FAERS Safety Report 24194286 (Version 1)
Quarter: 2024Q3

REPORT INFORMATION
  Report Type: Spontaneous
  Country: MX (occurrence: MX)
  Receive Date: 20240809
  Receipt Date: 20240809
  Transmission Date: 20241016
  Serious: Yes (Hospitalization, Other)
  Sender: AMICI PHARMACEUTICALS
  Company Number: MX-AMICI-2024AMILIT00006

PATIENT
  Age: 51 Year
  Sex: Male

DRUGS (1)
  1. DICLOFENAC POTASSIUM [Suspect]
     Active Substance: DICLOFENAC POTASSIUM
     Indication: Product used for unknown indication
     Route: 048

REACTIONS (2)
  - Road traffic accident [Unknown]
  - Anaphylactic shock [Recovering/Resolving]
